FAERS Safety Report 20183855 (Version 1)
Quarter: 2021Q4

REPORT INFORMATION
  Report Type: Report from Study
  Country: US (occurrence: US)
  Receive Date: 20211214
  Receipt Date: 20211214
  Transmission Date: 20220303
  Serious: Yes (Other)
  Sender: FDA-Public Use
  Company Number: US-UCBSA-2021057004

PATIENT
  Sex: Female

DRUGS (1)
  1. CERTOLIZUMAB PEGOL [Suspect]
     Active Substance: CERTOLIZUMAB PEGOL
     Indication: Psoriasis
     Dosage: 400 MILLIGRAM, MONTHLY (QM)
     Route: 058

REACTIONS (3)
  - Nasal septum deviation [Recovering/Resolving]
  - Sinusitis [Recovering/Resolving]
  - Sinus operation [Recovering/Resolving]
